FAERS Safety Report 14917213 (Version 3)
Quarter: 2018Q2

REPORT INFORMATION
  Report Type: Spontaneous
  Country: JP (occurrence: JP)
  Receive Date: 20180521
  Receipt Date: 20180605
  Transmission Date: 20180711
  Serious: Yes (Hospitalization)
  Sender: FDA-Public Use
  Company Number: JP-ABBVIE-18K-087-2360338-00

PATIENT
  Age: 47 Year
  Sex: Male
  Weight: 61.2 kg

DRUGS (7)
  1. FYCOMPA [Suspect]
     Active Substance: PERAMPANEL
     Dosage: BEFORE GOING TO BED
     Route: 065
     Dates: start: 20171121, end: 20180514
  2. FYCOMPA [Suspect]
     Active Substance: PERAMPANEL
     Dosage: BEFORE GOING TO BED
     Route: 065
     Dates: start: 20180514, end: 20180514
  3. BEPOTASTINE BESILATE [Concomitant]
     Active Substance: BEPOTASTINE BESILATE
     Indication: SEASONAL ALLERGY
     Route: 048
     Dates: start: 20180305
  4. HUMIRA [Suspect]
     Active Substance: ADALIMUMAB
     Indication: PSORIASIS
     Route: 058
     Dates: start: 201206
  5. FYCOMPA [Suspect]
     Active Substance: PERAMPANEL
     Dosage: BEFORE GOING TO BED
     Route: 065
     Dates: start: 20171108, end: 201711
  6. FYCOMPA [Suspect]
     Active Substance: PERAMPANEL
     Indication: PRODUCT USED FOR UNKNOWN INDICATION
     Dosage: BEFORE GOING TO BED
     Route: 065
     Dates: start: 20170514, end: 2017
  7. FYCOMPA [Suspect]
     Active Substance: PERAMPANEL
     Route: 065
     Dates: start: 20180516

REACTIONS (2)
  - Spinal osteoarthritis [Unknown]
  - Epilepsy [Recovered/Resolved]

NARRATIVE: CASE EVENT DATE: 20180514
